FAERS Safety Report 7546574-3 (Version None)
Quarter: 2011Q2

REPORT INFORMATION
  Report Type: 
  Country: None (occurrence: None)
  Receive Date: 20110614
  Receipt Date: 20110603
  Transmission Date: 20111010
  Serious: Yes (Hospitalization)
  Sender: FDA-Public Use
  Company Number: NL-BAXTER-2011BH018602

PATIENT
  Sex: Male

DRUGS (6)
  1. GAMMAGARD S/D [Suspect]
     Indication: OFF LABEL USE
     Dates: start: 20051025
  2. GAMMAGARD S/D [Suspect]
     Route: 042
     Dates: start: 20110315
  3. GAMMAGARD S/D [Suspect]
     Indication: CHRONIC INFLAMMATORY DEMYELINATING POLYRADICULONEUROPATHY
     Dates: start: 20051025
  4. GAMMAGARD S/D [Suspect]
     Route: 042
     Dates: start: 20110418
  5. GAMMAGARD S/D [Suspect]
     Route: 042
     Dates: start: 20110418
  6. GAMMAGARD S/D [Suspect]
     Route: 042
     Dates: start: 20110315

REACTIONS (1)
  - GASTROINTESTINAL HAEMORRHAGE [None]
